FAERS Safety Report 23505759 (Version 1)
Quarter: 2024Q1

REPORT INFORMATION
  Report Type: Spontaneous
  Country: US (occurrence: US)
  Receive Date: 20240209
  Receipt Date: 20240209
  Transmission Date: 20240410
  Serious: No
  Sender: FDA-Public Use
  Company Number: US-GSK-US2024AMR015096

PATIENT
  Sex: Female

DRUGS (1)
  1. FLUTICASONE PROPIONATE\SALMETEROL XINAFOATE [Suspect]
     Active Substance: FLUTICASONE PROPIONATE\SALMETEROL XINAFOATE
     Indication: Asthma prophylaxis
     Dosage: UNK, 230/21 MCG,TWO PUFFS IN THE MORNING AND TWO PUFFS IN THE EVENING

REACTIONS (2)
  - Wrong technique in device usage process [Unknown]
  - Incorrect dose administered [Unknown]
